FAERS Safety Report 9401251 (Version 1)
Quarter: 2013Q3

REPORT INFORMATION
  Report Type: Report from Study
  Country: US (occurrence: US)
  Receive Date: 20130715
  Receipt Date: 20130715
  Transmission Date: 20140515
  Serious: Yes (Death)
  Sender: FDA-Public Use
  Company Number: US-PFIZER INC-2013203763

PATIENT
  Age: 58 Year
  Sex: Male

DRUGS (5)
  1. HYDROXYZINE PAMOATE [Suspect]
     Dosage: UNK
     Route: 048
  2. ETHANOL [Concomitant]
     Dosage: UNK
     Route: 048
  3. NAPROXEN [Concomitant]
     Dosage: UNK
     Route: 048
  4. AMLODIPINE [Concomitant]
     Dosage: UNK
     Route: 048
  5. CHLORDIAZEPOXIDE [Concomitant]

REACTIONS (1)
  - Toxicity to various agents [Fatal]
